FAERS Safety Report 4642291-8 (Version None)
Quarter: 2005Q2

REPORT INFORMATION
  Report Type: 
  Country: None (occurrence: None)
  Receive Date: 20050421
  Receipt Date: 20050421
  Transmission Date: 20051028
  Serious: Yes (Other)
  Sender: FDA-Public Use
  Company Number: None

PATIENT
  Sex: Male
  Weight: 79.2 kg

DRUGS (5)
  1. DAUNOMYCIN [Suspect]
     Indication: ACUTE LYMPHOCYTIC LEUKAEMIA
     Dosage: 60 MG/M2 IVP ON DAYS 1, 8, 15 AND 22
     Route: 042
     Dates: start: 20050325
  2. VINCRISTINE SULFATE [Suspect]
     Dosage: 1.4 MG/M2 IVP ON DAYS 1, 8, 15, AND 22 NOTE: MAXIMUM DOSE 2 MG
     Route: 042
  3. PREDNISONE TAB [Suspect]
     Dosage: 60 MG/M2 PO QD FOR 28 DAYS.
     Route: 048
  4. ELSPAR [Suspect]
     Dosage: 1000 UNIT/M2 IV OVER 30 MIN QD ON DAYS 17-28.
     Route: 042
  5. METHOTREXATE [Suspect]
     Dosage: 12.5 MG IT ON DAY 15 ONLY UNLESS PT. RECEIVED TREATMENT FOR CNS LEUKEMIA
     Route: 037

REACTIONS (5)
  - ATELECTASIS [None]
  - BLOOD BILIRUBIN INCREASED [None]
  - BLOOD CULTURE POSITIVE [None]
  - PLEURAL EFFUSION [None]
  - STREPTOCOCCAL INFECTION [None]
